FAERS Safety Report 6587958-X (Version None)
Quarter: 2010Q1

REPORT INFORMATION
  Report Type: 
  Country: None (occurrence: None)
  Receive Date: 20100218
  Receipt Date: 20100208
  Transmission Date: 20100710
  Serious: Yes (Death, Hospitalization, Other)
  Sender: FDA-Public Use
  Company Number: IT-BRISTOL-MYERS SQUIBB COMPANY-14967483

PATIENT
  Age: 43 Year
  Sex: Male

DRUGS (13)
  1. DIDANOSINE [Suspect]
     Indication: ANTIRETROVIRAL THERAPY
  2. STAVUDINE [Suspect]
     Indication: ANTIRETROVIRAL THERAPY
  3. EFAVIRENZ [Suspect]
     Indication: ANTIRETROVIRAL THERAPY
  4. LAMIVUDINE + ZIDOVUDINE [Suspect]
     Indication: ANTIRETROVIRAL THERAPY
     Dosage: 1 DF=150/250
  5. TENOFOVIR [Suspect]
     Indication: ANTIRETROVIRAL THERAPY
  6. LAMIVUDINE [Suspect]
     Indication: ANTIRETROVIRAL THERAPY
  7. EMTRICITABINE AND TENOFOVIR DISOPROXIL FUMARATE [Suspect]
     Indication: ANTIRETROVIRAL THERAPY
     Dosage: 1DF-200/300 MG
     Dates: start: 20070401
  8. AMITRIPTYLINE HCL [Suspect]
     Indication: ALCOHOL ABUSE
  9. FOSAMPRENAVIR CALCIUM [Suspect]
     Indication: ANTIRETROVIRAL THERAPY
     Dates: start: 20070401
  10. RITONAVIR [Suspect]
     Indication: ANTIRETROVIRAL THERAPY
     Dates: start: 20070401
  11. DISULFIRAM [Suspect]
     Indication: ALCOHOL ABUSE
  12. NIFEDIPINE [Suspect]
     Indication: HYPERTENSION
     Dates: end: 20071102
  13. ALCOHOL [Suspect]

REACTIONS (3)
  - GASTRITIS [None]
  - HEPATIC CIRRHOSIS [None]
  - LACTIC ACIDOSIS [None]
